FAERS Safety Report 18581616 (Version 1)
Quarter: 2020Q4

REPORT INFORMATION
  Report Type: Spontaneous
  Country: US (occurrence: US)
  Receive Date: 20201204
  Receipt Date: 20201204
  Transmission Date: 20210114
  Serious: Yes (Other)
  Sender: FDA-Public Use
  Company Number: None

PATIENT
  Age: 77 Year
  Sex: Female

DRUGS (2)
  1. TYMLOS [Concomitant]
     Active Substance: ABALOPARATIDE
     Dates: start: 20201110, end: 20201130
  2. TYMLOS [Suspect]
     Active Substance: ABALOPARATIDE
     Indication: OSTEOPOROSIS
     Route: 058
     Dates: start: 20201110, end: 20201130

REACTIONS (2)
  - Middle insomnia [None]
  - Headache [None]

NARRATIVE: CASE EVENT DATE: 20201204
